FAERS Safety Report 8888029 (Version 1)
Quarter: 2012Q4

REPORT INFORMATION
  Report Type: 
  Country: US (occurrence: None)
  Receive Date: 20121101
  Receipt Date: 20121101
  Transmission Date: 20130627
  Serious: Yes (Hospitalization)
  Sender: FDA-Public Use
  Company Number: None

PATIENT
  Sex: Female
  Weight: 75.8 kg

DRUGS (2)
  1. AFINITOR [Suspect]
     Dates: end: 20121022
  2. SANDOSTATIN [Suspect]
     Dates: end: 20121008

REACTIONS (4)
  - Abdominal hernia repair [None]
  - Wound dehiscence [None]
  - Hypocalcaemia [None]
  - Anaemia [None]
